FAERS Safety Report 8532882-6 (Version None)
Quarter: 2012Q3

REPORT INFORMATION
  Report Type: 
  Country: None (occurrence: None)
  Receive Date: 20120724
  Receipt Date: 20120716
  Transmission Date: 20120928
  Serious: Yes (Other)
  Sender: FDA-Public Use
  Company Number: FR-BAYER-2012-071307

PATIENT
  Age: 40 Year
  Sex: Female

DRUGS (1)
  1. MOXIFLOXACIN HCL [Suspect]
     Indication: SINUSITIS
     Dosage: 400 MG, QD
     Route: 048
     Dates: start: 20120601, end: 20120604

REACTIONS (4)
  - CONFUSIONAL STATE [None]
  - SOMNOLENCE [None]
  - APHASIA [None]
  - SUICIDAL IDEATION [None]
